FAERS Safety Report 7951693-3 (Version None)
Quarter: 2011Q4

REPORT INFORMATION
  Report Type: 
  Country: None (occurrence: None)
  Receive Date: 20111201
  Receipt Date: 20111122
  Transmission Date: 20120403
  Serious: Yes (Other)
  Sender: FDA-Public Use
  Company Number: CA-CELGENEUS-028-21880-11113149

PATIENT
  Sex: Male

DRUGS (18)
  1. VITAMIN D [Concomitant]
     Route: 065
  2. LORAZEPAM [Concomitant]
     Dosage: 1 MILLIGRAM
     Route: 065
  3. HYDROMORPHONE HCL [Concomitant]
     Route: 065
  4. PROCHLORPERAZINE [Concomitant]
     Dosage: 10 MILLIGRAM
     Route: 065
  5. SIMVASTATIN [Concomitant]
     Dosage: 20 MILLIGRAM
     Route: 065
  6. SENOKOT [Concomitant]
     Route: 065
  7. CLOTRIMAZOLE [Concomitant]
     Route: 065
  8. HYDROCHLOROTHIAZIDE [Concomitant]
     Dosage: 40 MILLIGRAM
     Route: 065
  9. METFORMIN HCL [Concomitant]
     Route: 065
  10. ADALAT [Concomitant]
     Route: 065
  11. DEXAMETHASONE [Concomitant]
     Dosage: 40 MILLIGRAM
     Route: 065
  12. DILAUDID [Concomitant]
     Dosage: 2 MILLIGRAM
     Route: 065
  13. GLYCERINE [Concomitant]
     Route: 065
  14. CITALOPRAM [Concomitant]
     Dosage: 20 MILLIGRAM
     Route: 065
  15. VITAMIN B-12 [Concomitant]
     Route: 065
  16. GABAPENTIN [Concomitant]
     Dosage: 100 MILLIGRAM
     Route: 065
  17. REVLIMID [Suspect]
     Dosage: 25 MILLIGRAM
     Route: 048
  18. LACTULOSE [Concomitant]
     Dosage: 30 MILLILITER
     Route: 065

REACTIONS (2)
  - YELLOW SKIN [None]
  - RASH [None]
